FAERS Safety Report 20090264 (Version 1)
Quarter: 2021Q4

REPORT INFORMATION
  Report Type: Spontaneous
  Country: JP (occurrence: None)
  Receive Date: 20211119
  Receipt Date: 20211119
  Transmission Date: 20220303
  Serious: Yes (Other)
  Sender: FDA-Public Use
  Company Number: 2021A747599

PATIENT
  Age: 28866 Day
  Sex: Female
  Weight: 51 kg

DRUGS (5)
  1. DAPAGLIFLOZIN [Suspect]
     Active Substance: DAPAGLIFLOZIN
     Indication: Type 2 diabetes mellitus
     Dosage: DOSE UNKNOWN
     Route: 048
     Dates: start: 2021, end: 2021
  2. DAPAGLIFLOZIN [Suspect]
     Active Substance: DAPAGLIFLOZIN
     Indication: Chronic kidney disease
     Dosage: DOSE UNKNOWN
     Route: 048
     Dates: start: 2021, end: 2021
  3. DAPAGLIFLOZIN [Suspect]
     Active Substance: DAPAGLIFLOZIN
     Indication: Type 2 diabetes mellitus
     Dosage: DOSE UNKNOWN
     Route: 048
     Dates: start: 20210909, end: 20210915
  4. DAPAGLIFLOZIN [Suspect]
     Active Substance: DAPAGLIFLOZIN
     Indication: Chronic kidney disease
     Dosage: DOSE UNKNOWN
     Route: 048
     Dates: start: 20210909, end: 20210915
  5. FUROSEMIDE [Suspect]
     Active Substance: FUROSEMIDE
     Indication: Pleural effusion
     Route: 048
     Dates: start: 20201021, end: 20210915

REACTIONS (2)
  - Anaemia [Unknown]
  - Dehydration [Recovered/Resolved]

NARRATIVE: CASE EVENT DATE: 20210915
